FAERS Safety Report 20577604 (Version 1)
Quarter: 2022Q1

REPORT INFORMATION
  Report Type: Spontaneous
  Country: HU (occurrence: HU)
  Receive Date: 20220310
  Receipt Date: 20220310
  Transmission Date: 20220423
  Serious: Yes (Hospitalization, Other)
  Sender: FDA-Public Use
  Company Number: HU-MYLANLABS-2020M1005742

PATIENT
  Age: 66 Year
  Sex: Female

DRUGS (5)
  1. ASPIRIN [Suspect]
     Active Substance: ASPIRIN
     Indication: Anaemia
     Dosage: UNK
  2. ADALIMUMAB [Suspect]
     Active Substance: ADALIMUMAB
     Indication: Rheumatoid arthritis
     Dosage: 80 MILLIGRAM, BIMONTHLY (2 TIMES AT A DOSE OF 80 MG/ MONTH)
  3. ADALIMUMAB [Suspect]
     Active Substance: ADALIMUMAB
     Dosage: 80 MILLIGRAM, MONTHLY (80 MG, QMO)
     Route: 058
  4. METHOTREXATE [Suspect]
     Active Substance: METHOTREXATE
     Indication: Rheumatoid arthritis
     Dosage: UNK
     Route: 065
  5. HUMIRA [Suspect]
     Active Substance: ADALIMUMAB
     Indication: Rheumatoid arthritis
     Dosage: 80 MILLIGRAM, MONTHLY
     Route: 058
     Dates: start: 20181008, end: 20181108

REACTIONS (17)
  - Panniculitis [Unknown]
  - Skin necrosis [Recovering/Resolving]
  - Immunodeficiency [Unknown]
  - Rash papular [Unknown]
  - Ischaemic skin ulcer [Unknown]
  - Eschar [Unknown]
  - Vascular injury [Unknown]
  - Vasculitis necrotising [Recovering/Resolving]
  - Thrombocytosis [Unknown]
  - Anaemia [Unknown]
  - Necrosis [Unknown]
  - Skin lesion [Recovering/Resolving]
  - Bullous haemorrhagic dermatosis [Recovering/Resolving]
  - Septic shock [Not Recovered/Not Resolved]
  - Unevaluable event [Unknown]
  - Purpura [Recovering/Resolving]
  - Drug ineffective [Unknown]

NARRATIVE: CASE EVENT DATE: 20181101
